FAERS Safety Report 19198972 (Version 1)
Quarter: 2021Q2

REPORT INFORMATION
  Report Type: Spontaneous
  Country: US (occurrence: US)
  Receive Date: 20210429
  Receipt Date: 20210429
  Transmission Date: 20210717
  Serious: No
  Sender: FDA-Public Use
  Company Number: US-ROCHE-2700296

PATIENT
  Age: 35 Year
  Sex: Female
  Weight: 83.3 kg

DRUGS (9)
  1. ZYRTEC (UNITED STATES) [Concomitant]
     Indication: SEASONAL ALLERGY
     Dosage: 1 TABLET AS NEEDED FOR SEASONAL ALLERGIES, ONGOING YES
     Dates: start: 20201012
  2. ALPHA LIPOIC ACID [Concomitant]
     Active Substance: .ALPHA.-LIPOIC ACID
     Route: 048
     Dates: start: 20200909
  3. KADCYLA [Suspect]
     Active Substance: ADO-TRASTUZUMAB EMTANSINE
     Dosage: LAST 3 DOSES WERE 260MG PER DOSE ;ONGOING: NO
     Route: 042
     Dates: end: 20200311
  4. ACETAMINOPHEN. [Concomitant]
     Active Substance: ACETAMINOPHEN
     Indication: PAIN
     Dosage: 1 TABLET EVERY 6 HOURS FOR PAIN AS NEEDED ONGOING YES
     Route: 048
  5. ZOFRAN [Concomitant]
     Active Substance: ONDANSETRON HYDROCHLORIDE
     Indication: NAUSEA
     Dosage: GIVEN AS PREMED 1 HOUR PRIOR TO KADCYLA INFUSION, ONGOING NO
     Route: 042
     Dates: start: 20190612
  6. TRIAMCINOLONE [Concomitant]
     Active Substance: TRIAMCINOLONE
     Dosage: ONGOING YES
     Route: 061
     Dates: start: 20200910
  7. OMEPRAZOLE. [Concomitant]
     Active Substance: OMEPRAZOLE
     Indication: GASTROOESOPHAGEAL REFLUX DISEASE
     Dosage: ONGOING YES
     Route: 048
     Dates: start: 20190726
  8. KADCYLA [Suspect]
     Active Substance: ADO-TRASTUZUMAB EMTANSINE
     Indication: BREAST CANCER
     Dosage: DOSAGE FOR START DOSE BASED ON 3.6 MG/KG ;ONGOING: NO
     Route: 042
     Dates: start: 20190612
  9. GABAPENTIN. [Concomitant]
     Active Substance: GABAPENTIN
     Indication: NEUROPATHY PERIPHERAL
     Route: 048
     Dates: start: 20200527

REACTIONS (2)
  - Thyroid mass [Unknown]
  - Pregnancy [Unknown]

NARRATIVE: CASE EVENT DATE: 201911
